FAERS Safety Report 9922463 (Version 1)
Quarter: 2014Q1

REPORT INFORMATION
  Report Type: Spontaneous
  Country: US (occurrence: US)
  Receive Date: 20140225
  Receipt Date: 20140225
  Transmission Date: 20141002
  Serious: No
  Sender: FDA-Public Use
  Company Number: US-MYLANLABS-2013S1005947

PATIENT
  Sex: Male

DRUGS (3)
  1. ATENOLOL TABLETS, USP [Suspect]
     Indication: PALPITATIONS
  2. ATENOLOL TABLETS, USP [Suspect]
     Indication: ATRIAL FIBRILLATION
  3. ATENOLOL TABLETS, USP [Suspect]
     Indication: OFF LABEL USE

REACTIONS (2)
  - Atrial fibrillation [Not Recovered/Not Resolved]
  - Palpitations [Not Recovered/Not Resolved]
